FAERS Safety Report 11381242 (Version 1)
Quarter: 2015Q3

REPORT INFORMATION
  Report Type: Spontaneous
  Country: US (occurrence: US)
  Receive Date: 20150814
  Receipt Date: 20150814
  Transmission Date: 20151125
  Serious: No
  Sender: FDA-Public Use
  Company Number: US-JNJFOC-20150601673

PATIENT
  Sex: Female
  Weight: 54.43 kg

DRUGS (2)
  1. ESTROGEN [Concomitant]
     Active Substance: ESTRONE\SUS SCROFA OVARY
     Indication: HORMONE THERAPY
     Dosage: 0.5 UNITS UNSPECIFIED. 5 YEARS AGO (2010).
     Route: 065
     Dates: start: 2010
  2. REMICADE [Suspect]
     Active Substance: INFLIXIMAB
     Indication: COLITIS ULCERATIVE
     Route: 042
     Dates: start: 2013

REACTIONS (1)
  - Sciatica [Not Recovered/Not Resolved]

NARRATIVE: CASE EVENT DATE: 2015
